FAERS Safety Report 4365688-2 (Version None)
Quarter: 2004Q2

REPORT INFORMATION
  Report Type: 
  Country: None (occurrence: None)
  Receive Date: 20040525
  Receipt Date: 20040525
  Transmission Date: 20050107
  Serious: Yes (Other)
  Sender: FDA-Public Use
  Company Number: None

PATIENT
  Age: 63 Year
  Sex: Male
  Weight: 99.3377 kg

DRUGS (1)
  1. INNOHEP [Suspect]
     Indication: DEEP VEIN THROMBOSIS
     Dosage: 17, 000 UNITS ORDERED SQ 2Q D UNTIL INR 2-3 SUBCUTANEOUSLY)
     Route: 058
     Dates: start: 20040517, end: 20040520

REACTIONS (1)
  - MEDICATION ERROR [None]
